FAERS Safety Report 24849920 (Version 1)
Quarter: 2025Q1

REPORT INFORMATION
  Report Type: Spontaneous
  Country: US (occurrence: US)
  Receive Date: 20250116
  Receipt Date: 20250116
  Transmission Date: 20250409
  Serious: No
  Sender: ELI LILLY AND COMPANY
  Company Number: US-ELI_LILLY_AND_COMPANY-US202501009601

PATIENT
  Age: 42 Year
  Sex: Male

DRUGS (24)
  1. ZEPBOUND [Suspect]
     Active Substance: TIRZEPATIDE
     Indication: Product used for unknown indication
     Route: 065
     Dates: start: 202311
  2. ZEPBOUND [Suspect]
     Active Substance: TIRZEPATIDE
     Indication: Product used for unknown indication
     Route: 065
     Dates: start: 202311
  3. ZEPBOUND [Suspect]
     Active Substance: TIRZEPATIDE
     Indication: Product used for unknown indication
     Route: 065
     Dates: start: 202311
  4. ZEPBOUND [Suspect]
     Active Substance: TIRZEPATIDE
     Indication: Product used for unknown indication
     Route: 065
     Dates: start: 202311
  5. ZEPBOUND [Suspect]
     Active Substance: TIRZEPATIDE
     Route: 065
  6. ZEPBOUND [Suspect]
     Active Substance: TIRZEPATIDE
     Route: 065
  7. ZEPBOUND [Suspect]
     Active Substance: TIRZEPATIDE
     Route: 065
  8. ZEPBOUND [Suspect]
     Active Substance: TIRZEPATIDE
     Route: 065
  9. ZEPBOUND [Suspect]
     Active Substance: TIRZEPATIDE
     Route: 065
  10. ZEPBOUND [Suspect]
     Active Substance: TIRZEPATIDE
     Route: 065
  11. ZEPBOUND [Suspect]
     Active Substance: TIRZEPATIDE
     Route: 065
  12. ZEPBOUND [Suspect]
     Active Substance: TIRZEPATIDE
     Route: 065
  13. ZEPBOUND [Suspect]
     Active Substance: TIRZEPATIDE
     Route: 065
  14. ZEPBOUND [Suspect]
     Active Substance: TIRZEPATIDE
     Route: 065
  15. ZEPBOUND [Suspect]
     Active Substance: TIRZEPATIDE
     Route: 065
  16. ZEPBOUND [Suspect]
     Active Substance: TIRZEPATIDE
     Route: 065
  17. ZEPBOUND [Suspect]
     Active Substance: TIRZEPATIDE
     Route: 065
  18. ZEPBOUND [Suspect]
     Active Substance: TIRZEPATIDE
     Route: 065
  19. ZEPBOUND [Suspect]
     Active Substance: TIRZEPATIDE
     Route: 065
  20. ZEPBOUND [Suspect]
     Active Substance: TIRZEPATIDE
     Route: 065
  21. ZEPBOUND [Suspect]
     Active Substance: TIRZEPATIDE
     Route: 065
     Dates: start: 202406
  22. ZEPBOUND [Suspect]
     Active Substance: TIRZEPATIDE
     Route: 065
     Dates: start: 202406
  23. ZEPBOUND [Suspect]
     Active Substance: TIRZEPATIDE
     Route: 065
     Dates: start: 202406
  24. ZEPBOUND [Suspect]
     Active Substance: TIRZEPATIDE
     Route: 065
     Dates: start: 202406

REACTIONS (3)
  - Nocturia [Unknown]
  - Micturition urgency [Unknown]
  - Sleep disorder due to a general medical condition [Unknown]

NARRATIVE: CASE EVENT DATE: 20241001
